FAERS Safety Report 5044447-1 (Version None)
Quarter: 2006Q3

REPORT INFORMATION
  Report Type: 
  Country: None (occurrence: None)
  Receive Date: 20060706
  Receipt Date: 20060403
  Transmission Date: 20061208
  Serious: Yes (Hospitalization)
  Sender: FDA-Public Use
  Company Number: 8011022

PATIENT
  Age: 58 Year
  Sex: Male
  Weight: 110 kg

DRUGS (5)
  1. ZANTAC [Suspect]
     Indication: GASTROINTESTINAL DISORDER
     Dosage: 150MG SEE DOSAGE TEXT
     Route: 048
     Dates: start: 20050625, end: 20050705
  2. KEPPRA [Suspect]
     Indication: CONVULSION PROPHYLAXIS
     Dosage: 500MG TWICE PER DAY
     Route: 048
     Dates: start: 20050616
  3. FOSPHENYTOIN SODIUM [Suspect]
     Indication: CONVULSION PROPHYLAXIS
     Route: 042
     Dates: start: 20050628, end: 20050629
  4. DEXAMETHASONE TAB [Concomitant]
     Route: 065
  5. GABAPENTIN [Concomitant]
     Indication: CONVULSION PROPHYLAXIS
     Route: 065
     Dates: start: 20050701

REACTIONS (14)
  - ALANINE AMINOTRANSFERASE INCREASED [None]
  - ASPARTATE AMINOTRANSFERASE INCREASED [None]
  - CONFUSIONAL STATE [None]
  - FATIGUE [None]
  - HAEMATOCRIT DECREASED [None]
  - HAEMOGLOBIN DECREASED [None]
  - HEPATIC FAILURE [None]
  - HEPATIC NECROSIS [None]
  - LETHARGY [None]
  - NAUSEA [None]
  - POST PROCEDURAL COMPLICATION [None]
  - PYREXIA [None]
  - THROMBOCYTOPENIA [None]
  - WHITE BLOOD CELL COUNT DECREASED [None]
